FAERS Safety Report 4700423-7 (Version None)
Quarter: 2005Q2

REPORT INFORMATION
  Report Type: 
  Country: None (occurrence: None)
  Receive Date: 20050627
  Receipt Date: 20050331
  Transmission Date: 20051028
  Serious: Yes (Hospitalization, Disabling)
  Sender: FDA-Public Use
  Company Number: US-ROCHE-400579

PATIENT
  Age: 24 Year
  Sex: Male
  Weight: 93.9 kg

DRUGS (14)
  1. ACCUTANE [Suspect]
     Indication: ACNE
     Route: 048
     Dates: start: 19890615, end: 19890615
  2. ACCUTANE [Suspect]
     Route: 048
     Dates: start: 19930315, end: 19930816
  3. ACCUTANE [Suspect]
     Route: 048
     Dates: start: 19931103, end: 19940415
  4. ACCUTANE [Suspect]
     Dosage: TAKEN ONCE EVERY THREE TO FIVE DAYS AS NECESSARY.
     Route: 048
     Dates: start: 20010423
  5. ACCUTANE [Suspect]
     Route: 048
     Dates: start: 20040419
  6. BACTRIM DS [Concomitant]
     Route: 048
     Dates: start: 19930119
  7. RETIN-A [Concomitant]
     Route: 061
     Dates: start: 19930119
  8. PANOXYL [Concomitant]
     Route: 061
     Dates: start: 19930119
  9. BACTROBAN [Concomitant]
     Route: 061
     Dates: start: 19940520
  10. BENZAC 5 [Concomitant]
     Route: 061
     Dates: start: 19940520
  11. KENALOG-10 [Concomitant]
     Dates: start: 19940526, end: 19940526
  12. METROGEL [Concomitant]
     Route: 061
     Dates: start: 19941123
  13. SPECTAZOLE [Concomitant]
     Route: 061
     Dates: start: 19941123
  14. DIFLUCAN [Concomitant]
     Dosage: DOSAGE REGIMEN REPORTED AS: 200MG.
     Route: 048
     Dates: start: 19950814

REACTIONS (59)
  - ABDOMINAL PAIN UPPER [None]
  - ABSCESS [None]
  - ADENOMATOUS POLYPOSIS COLI [None]
  - ALANINE AMINOTRANSFERASE INCREASED [None]
  - ANAEMIA [None]
  - ANAL HAEMORRHAGE [None]
  - ANAL SKIN TAGS [None]
  - APHTHOUS STOMATITIS [None]
  - ARTHRALGIA [None]
  - ASPARTATE AMINOTRANSFERASE INCREASED [None]
  - ATHEROSCLEROSIS [None]
  - BACK PAIN [None]
  - BLOOD ALKALINE PHOSPHATASE INCREASED [None]
  - BLOOD CHOLESTEROL INCREASED [None]
  - BLOOD TRIGLYCERIDES INCREASED [None]
  - BONE DISORDER [None]
  - BONE PAIN [None]
  - CARDIAC DISORDER [None]
  - CHEST PAIN [None]
  - CONDITION AGGRAVATED [None]
  - CROHN'S DISEASE [None]
  - DECREASED APPETITE [None]
  - DISEASE RECURRENCE [None]
  - DRUG INTOLERANCE [None]
  - EPIDERMAL NAEVUS [None]
  - FATIGUE [None]
  - FLANK PAIN [None]
  - FOLLICULITIS [None]
  - FURUNCLE [None]
  - GASTROINTESTINAL DISORDER [None]
  - GROIN PAIN [None]
  - HYPERKERATOSIS [None]
  - ILEITIS [None]
  - INFLAMMATORY BOWEL DISEASE [None]
  - INSOMNIA [None]
  - INTESTINAL HAEMORRHAGE [None]
  - IRRITABLE BOWEL SYNDROME [None]
  - JOINT INJURY [None]
  - MEAN CELL VOLUME DECREASED [None]
  - MULTI-ORGAN DISORDER [None]
  - NIGHT BLINDNESS [None]
  - NODULE [None]
  - PAIN IN EXTREMITY [None]
  - PILONIDAL CYST [None]
  - RASH [None]
  - RASH MACULAR [None]
  - RECTAL HAEMORRHAGE [None]
  - ROSACEA [None]
  - SKIN DISORDER [None]
  - SKIN PAPILLOMA [None]
  - STAPHYLOCOCCAL INFECTION [None]
  - STOMATITIS [None]
  - STRESS AT WORK [None]
  - SWEAT GLAND INFECTION [None]
  - THERAPY NON-RESPONDER [None]
  - TINEA INFECTION [None]
  - VISUAL DISTURBANCE [None]
  - VITAMIN B12 DECREASED [None]
  - WEIGHT DECREASED [None]
